FAERS Safety Report 9308151 (Version 4)
Quarter: 2013Q2

REPORT INFORMATION
  Report Type: Spontaneous
  Country: JP (occurrence: JP)
  Receive Date: 20130524
  Receipt Date: 20130618
  Transmission Date: 20140414
  Serious: Yes (Life-Threatening, Hospitalization, Disabling)
  Sender: FDA-Public Use
  Company Number: JP-SANOFI-AVENTIS-2013SA050998

PATIENT
  Age: 66 Year
  Sex: Male
  Weight: 67.1 kg

DRUGS (6)
  1. PLAVIX [Suspect]
     Indication: CEREBRAL INFARCTION
     Route: 048
     Dates: start: 201302, end: 20130508
  2. TAMSULOSIN [Concomitant]
     Dosage: DOSE: 0.1 (UNIT NOT PROVIDED)
     Route: 048
     Dates: end: 20130508
  3. MIYA-BM [Concomitant]
     Route: 048
     Dates: end: 20130508
  4. TANNALBIN [Concomitant]
     Route: 048
     Dates: end: 20130508
  5. CRAVIT [Concomitant]
     Route: 048
     Dates: end: 20130508
  6. FAMOTIDINE [Concomitant]
     Route: 048
     Dates: end: 20130508

REACTIONS (15)
  - Haemolytic uraemic syndrome [Not Recovered/Not Resolved]
  - Blood lactate dehydrogenase increased [Not Recovered/Not Resolved]
  - Haemoglobin decreased [Not Recovered/Not Resolved]
  - Red cell fragmentation syndrome [Not Recovered/Not Resolved]
  - Platelet count decreased [Not Recovered/Not Resolved]
  - Pyrexia [Unknown]
  - Rash [Unknown]
  - Decreased appetite [Unknown]
  - Renal failure acute [Not Recovered/Not Resolved]
  - Urine output decreased [Unknown]
  - Face oedema [Unknown]
  - Oliguria [Unknown]
  - Blood creatinine increased [Unknown]
  - Haematuria [Unknown]
  - Oedema [Unknown]
